FAERS Safety Report 16344345 (Version 2)
Quarter: 2019Q2

REPORT INFORMATION
  Report Type: Spontaneous
  Country: NL (occurrence: NL)
  Receive Date: 20190522
  Receipt Date: 20190528
  Transmission Date: 20190711
  Serious: Yes (Congenital Anomaly, Other)
  Sender: FDA-Public Use
  Company Number: NL-MYLANLABS-2019M1047505

PATIENT
  Age: 24 Week

DRUGS (2)
  1. CARBAMAZEPINE. [Suspect]
     Active Substance: CARBAMAZEPINE
     Indication: PRODUCT USED FOR UNKNOWN INDICATION
     Dosage: 600 MILLIGRAM, QD (600 MG, QD)
     Route: 064
  2. FRISIUM [Suspect]
     Active Substance: CLOBAZAM
     Indication: PRODUCT USED FOR UNKNOWN INDICATION
     Dosage: 40 MILLIGRAM, QD (40 MG, QD)
     Route: 064

REACTIONS (2)
  - Limb reduction defect [Unknown]
  - Foetal exposure during pregnancy [Recovered/Resolved]
